FAERS Safety Report 7792453-6 (Version None)
Quarter: 2011Q4

REPORT INFORMATION
  Report Type: 
  Country: None (occurrence: None)
  Receive Date: 20111003
  Receipt Date: 20110928
  Transmission Date: 20120403
  Serious: No
  Sender: FDA-Public Use
  Company Number: US-PFIZER INC-2011231309

PATIENT
  Sex: Female

DRUGS (2)
  1. ALPRAZOLAM [Suspect]
     Indication: PANIC ATTACK
     Dosage: UNK
  2. KLONOPIN [Suspect]
     Indication: PANIC ATTACK
     Dosage: UNK

REACTIONS (2)
  - FEELING DRUNK [None]
  - ACTIVITIES OF DAILY LIVING IMPAIRED [None]
